FAERS Safety Report 9128284 (Version 1)
Quarter: 2013Q1

REPORT INFORMATION
  Report Type: Spontaneous
  Country: US (occurrence: US)
  Receive Date: 20130228
  Receipt Date: 20130228
  Transmission Date: 20140127
  Serious: No
  Sender: FDA-Public Use
  Company Number: US-ABBOTT-13P-163-1030802-00

PATIENT
  Sex: Male
  Weight: 81.27 kg

DRUGS (8)
  1. ANDROGEL [Suspect]
     Indication: BLOOD TESTOSTERONE DECREASED
     Dates: start: 201208
  2. METOPROLOL [Concomitant]
     Indication: HEART RATE IRREGULAR
  3. NEXIUM [Concomitant]
     Indication: DYSPEPSIA
  4. KLONOPIN [Concomitant]
     Indication: RESTLESS LEGS SYNDROME
  5. WARFARIN [Concomitant]
     Indication: ANTICOAGULANT THERAPY
  6. GABAPENTIN [Concomitant]
     Indication: PRODUCT USED FOR UNKNOWN INDICATION
  7. ATORVASTATIN [Concomitant]
     Indication: BLOOD CHOLESTEROL INCREASED
  8. CITALOPRAM [Concomitant]
     Indication: DEPRESSION

REACTIONS (4)
  - Rash macular [Recovering/Resolving]
  - Pruritus generalised [Recovering/Resolving]
  - Ejaculation failure [Not Recovered/Not Resolved]
  - Erectile dysfunction [Not Recovered/Not Resolved]
